FAERS Safety Report 9245733 (Version 4)
Quarter: 2014Q3

REPORT INFORMATION
  Report Type: Spontaneous
  Country: US (occurrence: US)
  Receive Date: 20130422
  Receipt Date: 20140808
  Transmission Date: 20150326
  Serious: Yes (Hospitalization, Disabling, Other)
  Sender: FDA-Public Use
  Company Number: US-009507513-1304USA009222

PATIENT
  Sex: Female
  Weight: 52.15 kg

DRUGS (3)
  1. ACTONEL [Suspect]
     Active Substance: RISEDRONATE SODIUM
     Indication: OSTEOPENIA
     Dosage: 35 MG, QW
     Route: 048
     Dates: start: 20040203, end: 200902
  2. ALENDRONATE SODIUM. [Suspect]
     Active Substance: ALENDRONATE SODIUM
     Indication: OSTEOPENIA
     Dosage: 70 MG, UNK
     Dates: start: 20090115, end: 201203
  3. FOSAMAX [Suspect]
     Active Substance: ALENDRONATE SODIUM
     Dosage: 70 MG, QW
     Route: 048

REACTIONS (51)
  - Nodule [Unknown]
  - Limb asymmetry [Unknown]
  - Osteoarthritis [Unknown]
  - Spinal osteoarthritis [Unknown]
  - Hyperlipidaemia [Unknown]
  - Sinus disorder [Unknown]
  - Myalgia [Unknown]
  - Intramedullary rod insertion [Unknown]
  - Aspartate aminotransferase increased [Unknown]
  - Sleep disorder [Unknown]
  - Foot fracture [Unknown]
  - Fibrocystic breast disease [Unknown]
  - Ankle fracture [Unknown]
  - Neck surgery [Unknown]
  - Intramedullary rod insertion [Unknown]
  - Hysterectomy [Unknown]
  - Anaemia [Unknown]
  - Rib fracture [Unknown]
  - Sinusitis [Unknown]
  - Fracture nonunion [Unknown]
  - Phlebitis [Unknown]
  - Appendicectomy [Unknown]
  - Nausea [Unknown]
  - Femur fracture [Recovering/Resolving]
  - Femur fracture [Recovered/Resolved]
  - Low turnover osteopathy [Unknown]
  - Sinus bradycardia [Unknown]
  - Liver function test abnormal [Recovering/Resolving]
  - Hypertension [Unknown]
  - Hyperkeratosis [Unknown]
  - Fibromyalgia [Unknown]
  - Ecchymosis [Unknown]
  - Haemorrhagic anaemia [Unknown]
  - Mass [Unknown]
  - Foot fracture [Recovered/Resolved]
  - Foot fracture [Recovering/Resolving]
  - Bronchoscopy [Unknown]
  - Sinus operation [Unknown]
  - Osteoporosis [Unknown]
  - Hypothyroidism [Unknown]
  - Rib fracture [Unknown]
  - Asthma [Unknown]
  - Ankle operation [Unknown]
  - Systemic lupus erythematosus [Unknown]
  - Intervertebral disc operation [Unknown]
  - Autoimmune haemolytic anaemia [Unknown]
  - Sjogren^s syndrome [Unknown]
  - Bunion operation [Unknown]
  - Contusion [Unknown]
  - Encephalopathy [Recovered/Resolved]
  - Gastrooesophageal reflux disease [Unknown]

NARRATIVE: CASE EVENT DATE: 1997
